FAERS Safety Report 7091010-7 (Version None)
Quarter: 2010Q4

REPORT INFORMATION
  Report Type: 
  Country: None (occurrence: None)
  Receive Date: 20101109
  Receipt Date: 20101028
  Transmission Date: 20110411
  Serious: Yes (Hospitalization)
  Sender: FDA-Public Use
  Company Number: NL-GENENTECH-304892

PATIENT
  Sex: Female
  Weight: 53 kg

DRUGS (4)
  1. RITUXIMAB [Suspect]
     Indication: MALIGNANT LYMPHOID NEOPLASM
     Dosage: 740 MG, UNK
     Route: 042
     Dates: start: 20100715, end: 20100715
  2. DEXAMETHASONE [Suspect]
     Indication: MALIGNANT LYMPHOID NEOPLASM
     Dosage: 40 MG, UNK
     Route: 048
     Dates: start: 20100715, end: 20100718
  3. CISPLATIN [Suspect]
     Indication: MALIGNANT LYMPHOID NEOPLASM
     Dosage: 148 MG, UNK
     Route: 042
     Dates: start: 20100715, end: 20100715
  4. CYTARABINE [Suspect]
     Indication: MALIGNANT LYMPHOID NEOPLASM
     Dosage: 3950 MG, UNK
     Route: 042
     Dates: start: 20100716, end: 20100716

REACTIONS (2)
  - HYPERSENSITIVITY [None]
  - SEPSIS [None]
